FAERS Safety Report 6834160-X (Version None)
Quarter: 2010Q3

REPORT INFORMATION
  Report Type: 
  Country: None (occurrence: None)
  Receive Date: 20100712
  Receipt Date: 20070412
  Transmission Date: 20110219
  Serious: No
  Sender: FDA-Public Use
  Company Number: US-PFIZER INC-2007030313

PATIENT
  Sex: Male
  Weight: 147.4 kg

DRUGS (5)
  1. CHANTIX [Suspect]
     Indication: SMOKING CESSATION THERAPY
     Dates: start: 20070301, end: 20070410
  2. VIAGRA [Suspect]
     Indication: ERECTILE DYSFUNCTION
  3. CIALIS [Suspect]
     Indication: ERECTILE DYSFUNCTION
  4. HERBAL PREPARATION INGREDIENTS UNKNOWN [Concomitant]
  5. ACTIFED [Concomitant]

REACTIONS (8)
  - ABNORMAL DREAMS [None]
  - CONSTIPATION [None]
  - DIARRHOEA [None]
  - DRUG INEFFECTIVE [None]
  - FLUID RETENTION [None]
  - HYPOAESTHESIA [None]
  - INCREASED APPETITE [None]
  - MEMORY IMPAIRMENT [None]
